FAERS Safety Report 5961339-1 (Version None)
Quarter: 2008Q4

REPORT INFORMATION
  Report Type: 
  Country: None (occurrence: None)
  Receive Date: 20081114
  Receipt Date: 20080905
  Transmission Date: 20090506
  Serious: No
  Sender: FDA-Public Use
  Company Number: WAES 0809USA0874

PATIENT
  Age: 63 Year
  Sex: Female

DRUGS (1)
  1. ISENTRESS [Suspect]
     Dosage: 400 MG/BID
     Dates: start: 20080704

REACTIONS (1)
  - BLOOD GLUCOSE INCREASED [None]
